FAERS Safety Report 15068088 (Version 1)
Quarter: 2018Q2

REPORT INFORMATION
  Report Type: Report from Study
  Country: CA (occurrence: CA)
  Receive Date: 20180626
  Receipt Date: 20180626
  Transmission Date: 20180711
  Serious: Yes (Death, Other)
  Sender: FDA-Public Use
  Company Number: CA-MYLANLABS-2018M1045077

PATIENT
  Sex: Female

DRUGS (6)
  1. DEXAMETHASONE. [Concomitant]
     Active Substance: DEXAMETHASONE
     Indication: PRODUCT USED FOR UNKNOWN INDICATION
     Route: 042
  2. LIPIODOL [Concomitant]
     Active Substance: ETHIODIZED OIL
     Indication: MALFORMATION VENOUS
     Route: 065
  3. CELEBREX [Concomitant]
     Active Substance: CELECOXIB
     Indication: PRODUCT USED FOR UNKNOWN INDICATION
     Route: 065
  4. SODIUM TETRADECYL SULFATE [Suspect]
     Active Substance: SODIUM TETRADECYL SULFATE
     Dosage: DURING THE SECOND SESSION
     Route: 065
  5. SODIUM TETRADECYL SULFATE [Suspect]
     Active Substance: SODIUM TETRADECYL SULFATE
     Indication: MALFORMATION VENOUS
     Dosage: FOAM MADE OF 2ML 3% SODIUM TETRADECY SULFATE MIXED WITH ETHIODISED OIL AND ROOM AIR
     Route: 065
  6. CELEBREX [Concomitant]
     Active Substance: CELECOXIB
     Route: 065

REACTIONS (3)
  - Pulmonary alveolar haemorrhage [Fatal]
  - Pulmonary oedema [Fatal]
  - Respiratory failure [Fatal]
